FAERS Safety Report 4639611-7 (Version None)
Quarter: 2005Q2

REPORT INFORMATION
  Report Type: 
  Country: None (occurrence: None)
  Receive Date: 20050415
  Receipt Date: 20050408
  Transmission Date: 20051028
  Serious: Yes (Other)
  Sender: FDA-Public Use
  Company Number: GXKR2005ES00887

PATIENT
  Age: 49 Year
  Sex: Female

DRUGS (1)
  1. TERMALGIN CODEINA (NCH) (NGX) (ACETAMINOPHEN  (PARACETAMOL), CODEINE P [Suspect]
     Dosage: ORAL
     Route: 048
     Dates: start: 20040901

REACTIONS (3)
  - CHEST PAIN [None]
  - ELECTROCARDIOGRAM REPOLARISATION ABNORMALITY [None]
  - SINUS BRADYCARDIA [None]
